FAERS Safety Report 16007632 (Version 1)
Quarter: 2019Q1

REPORT INFORMATION
  Report Type: Report from Study
  Country: None (occurrence: US)
  Receive Date: 20190226
  Receipt Date: 20190226
  Transmission Date: 20190418
  Serious: Yes (Disabling, Other)
  Sender: FDA-Public Use
  Company Number: US-ABBVIE-18S-163-2257375-00

PATIENT
  Age: 55 Year
  Sex: Female

DRUGS (1)
  1. SYNTHROID [Suspect]
     Active Substance: LEVOTHYROXINE SODIUM
     Indication: PRODUCT USED FOR UNKNOWN INDICATION
     Route: 048

REACTIONS (8)
  - Cognitive disorder [Unknown]
  - Executive dysfunction [Unknown]
  - Road traffic accident [Unknown]
  - Bowel movement irregularity [Unknown]
  - Back disorder [Unknown]
  - Disturbance in attention [Unknown]
  - Brain injury [Unknown]
  - Amnesia [Unknown]

NARRATIVE: CASE EVENT DATE: 19980830
